FAERS Safety Report 7711759-X (Version None)
Quarter: 2011Q3

REPORT INFORMATION
  Report Type: 
  Country: None (occurrence: None)
  Receive Date: 20110822
  Receipt Date: 20110808
  Transmission Date: 20111222
  Serious: Yes (Death, Other)
  Sender: FDA-Public Use
  Company Number: CL-337-2011

PATIENT
  Age: 80 Year
  Sex: Female

DRUGS (2)
  1. CIPROFLOXACIN [Suspect]
  2. METRONIDAZOLE [Suspect]
     Indication: PRODUCT USED FOR UNKNOWN INDICATION
     Dosage: UNK

REACTIONS (2)
  - LIVER INJURY [None]
  - HEPATIC FAILURE [None]
